FAERS Safety Report 16854035 (Version 1)
Quarter: 2019Q3

REPORT INFORMATION
  Report Type: Spontaneous
  Country: TH (occurrence: TH)
  Receive Date: 20190926
  Receipt Date: 20190926
  Transmission Date: 20191005
  Serious: Yes (Other)
  Sender: FDA-Public Use
  Company Number: TH-ORION CORPORATION ORION PHARMA-ENT 2019-0072

PATIENT
  Age: 71 Year
  Sex: Female

DRUGS (24)
  1. FLUOXETINE [Concomitant]
     Active Substance: FLUOXETINE HYDROCHLORIDE
     Route: 065
  2. ENTACAPONE (TRADE NAME UNKNOWN) [Suspect]
     Active Substance: ENTACAPONE
     Dosage: 1 TAB AT 8,12,16,20
     Route: 048
     Dates: start: 201903
  3. ENTACAPONE (TRADE NAME UNKNOWN) [Suspect]
     Active Substance: ENTACAPONE
     Dosage: 1 TAB AT 8,12,16,20
     Route: 048
     Dates: start: 20190625
  4. ATORVASTATIN [Suspect]
     Active Substance: ATORVASTATIN
     Indication: PRODUCT USED FOR UNKNOWN INDICATION
     Dosage: STRENGTH: 40 MG
     Route: 048
  5. MEMANTINE. [Concomitant]
     Active Substance: MEMANTINE
     Route: 065
  6. RIVASTIGMINE. [Suspect]
     Active Substance: RIVASTIGMINE
     Indication: PRODUCT USED FOR UNKNOWN INDICATION
     Dosage: (1X2 PC)
     Route: 048
  7. ENTACAPONE (TRADE NAME UNKNOWN) [Suspect]
     Active Substance: ENTACAPONE
     Indication: PRODUCT USED FOR UNKNOWN INDICATION
     Dosage: 1 TAB AT 8,12,16,20
     Route: 048
  8. ENTACAPONE (TRADE NAME UNKNOWN) [Suspect]
     Active Substance: ENTACAPONE
     Dosage: 1X1 AT 8,14,20
     Route: 048
     Dates: start: 201902
  9. RASAGILINE. [Concomitant]
     Active Substance: RASAGILINE
     Route: 065
  10. LEVODOPA/CARBIDOPA [Concomitant]
     Active Substance: CARBIDOPA\LEVODOPA
     Dosage: 100/25 M
     Route: 065
  11. ENTACAPONE (TRADE NAME UNKNOWN) [Suspect]
     Active Substance: ENTACAPONE
     Dosage: 1 TAB AT 8,12,16,20
     Route: 048
     Dates: start: 20190517
  12. RIVASTIGMINE. [Suspect]
     Active Substance: RIVASTIGMINE
     Dosage: (1X2 PC)
     Route: 048
     Dates: start: 201902
  13. RIVASTIGMINE. [Suspect]
     Active Substance: RIVASTIGMINE
     Dosage: (1X2 PC)
     Route: 048
     Dates: start: 20190517
  14. LEVODOPA BENSERAZIDE [Concomitant]
     Active Substance: BENSERAZIDE\LEVODOPA
     Route: 065
  15. RIVASTIGMINE. [Suspect]
     Active Substance: RIVASTIGMINE
     Dosage: (1X2 PC)
     Route: 048
     Dates: start: 201903
  16. RIVASTIGMINE. [Suspect]
     Active Substance: RIVASTIGMINE
     Dosage: (1X2 PC)
     Route: 048
     Dates: start: 20190625
  17. QUININE [Concomitant]
     Active Substance: QUININE
     Route: 065
  18. BETAHISTINE [Concomitant]
     Active Substance: BETAHISTINE
     Route: 065
  19. VALSARTAN. [Suspect]
     Active Substance: VALSARTAN
     Indication: PRODUCT USED FOR UNKNOWN INDICATION
     Route: 048
  20. ROPINIROLE. [Concomitant]
     Active Substance: ROPINIROLE
     Route: 065
  21. LAMOTRIGINE. [Concomitant]
     Active Substance: LAMOTRIGINE
     Route: 065
  22. CLONAZEPAM. [Concomitant]
     Active Substance: CLONAZEPAM
     Route: 065
  23. QUETIAPINE. [Concomitant]
     Active Substance: QUETIAPINE
     Route: 065
  24. VITAMIN D [Concomitant]
     Active Substance: VITAMIN D NOS
     Route: 065

REACTIONS (26)
  - Postural tremor [Unknown]
  - Blood albumin decreased [Unknown]
  - Bradykinesia [Unknown]
  - Reduced facial expression [Unknown]
  - Memory impairment [Unknown]
  - Haemoglobin decreased [Unknown]
  - Parkinsonian rest tremor [Unknown]
  - Protein total decreased [Unknown]
  - Reflex test abnormal [Unknown]
  - Gait disturbance [Unknown]
  - Hallucination, visual [Unknown]
  - Somnambulism [Unknown]
  - Delusion [Unknown]
  - Muscle spasms [Unknown]
  - Cogwheel rigidity [Unknown]
  - Depression [Unknown]
  - Resting tremor [Unknown]
  - Movement disorder [Unknown]
  - Mood swings [Recovering/Resolving]
  - Intentional self-injury [Unknown]
  - Action tremor [Unknown]
  - Parkinsonian gait [Unknown]
  - Irritability [Unknown]
  - Insomnia [Unknown]
  - Balance disorder [Unknown]
  - Tremor [Not Recovered/Not Resolved]
